FAERS Safety Report 11544776 (Version 1)
Quarter: 2015Q3

REPORT INFORMATION
  Report Type: Spontaneous
  Country: US (occurrence: None)
  Receive Date: 20150923
  Receipt Date: 20150923
  Transmission Date: 20151125
  Serious: Yes (Life-Threatening)
  Sender: FDA-Public Use
  Company Number: None

PATIENT
  Age: 68 Year
  Sex: Male
  Weight: 75.1 kg

DRUGS (1)
  1. SULFAMETHIZOLE/TRIMETHOPRIM [Suspect]
     Active Substance: SULFAMETHOXAZOLE\TRIMETHOPRIM
     Indication: WOUND INFECTION
     Route: 048
     Dates: start: 20140805, end: 20150810

REACTIONS (2)
  - Documented hypersensitivity to administered product [None]
  - Anaphylactic reaction [None]

NARRATIVE: CASE EVENT DATE: 20150810
